FAERS Safety Report 9239536 (Version 1)
Quarter: 2013Q2

REPORT INFORMATION
  Report Type: Spontaneous
  Country: US (occurrence: US)
  Receive Date: 20130418
  Receipt Date: 20130418
  Transmission Date: 20140414
  Serious: Yes (Other)
  Sender: FDA-Public Use
  Company Number: US-GILEAD-2013-0073564

PATIENT
  Age: 50 Year
  Sex: Female

DRUGS (1)
  1. VIREAD [Suspect]
     Indication: HEPATITIS B
     Dosage: UNK
     Dates: start: 2005

REACTIONS (2)
  - Hepatic cancer [Unknown]
  - Osteoporosis [Unknown]
